FAERS Safety Report 21933053 (Version 2)
Quarter: 2023Q1

REPORT INFORMATION
  Report Type: Spontaneous
  Country: US (occurrence: US)
  Receive Date: 20230131
  Receipt Date: 20230209
  Transmission Date: 20230418
  Serious: No
  Sender: FDA-Public Use
  Company Number: US-TAKEDA-2023TUS011088

PATIENT
  Sex: Female

DRUGS (1)
  1. VYVANSE [Suspect]
     Active Substance: LISDEXAMFETAMINE DIMESYLATE
     Indication: Panic attack
     Dosage: 50 MILLIGRAM
     Route: 065

REACTIONS (5)
  - Loss of employment [Unknown]
  - Drug ineffective [Unknown]
  - Product physical issue [Unknown]
  - Withdrawal syndrome [Unknown]
  - Product use in unapproved indication [Unknown]
